FAERS Safety Report 4487798-1 (Version None)
Quarter: 2004Q4

REPORT INFORMATION
  Report Type: 
  Country: None (occurrence: None)
  Receive Date: 20041025
  Receipt Date: 20041011
  Transmission Date: 20050328
  Serious: Yes (Hospitalization)
  Sender: FDA-Public Use
  Company Number: 209093

PATIENT
  Age: 69 Year
  Sex: Female
  Weight: 62 kg

DRUGS (7)
  1. RITUXAN [Suspect]
     Indication: CHRONIC LYMPHOCYTIC LEUKAEMIA
     Dosage: 500 MG, Q28D,   INTRAVENOUS
     Route: 042
     Dates: start: 20040202, end: 20040705
  2. FLUDARABINE PHOSPHATE [Suspect]
     Indication: CHRONIC LYMPHOCYTIC LEUKAEMIA
     Dosage: 25 MG/M2, Q28D, INTRAVENOUS
     Route: 042
     Dates: start: 20040203, end: 20040707
  3. CYCLOPHOSPHAMIDE [Suspect]
     Indication: CHRONIC LYMPHOCYTIC LEUKAEMIA
     Dosage: 250 MG/M2, Q28D, INTRAVENOUS
     Route: 042
     Dates: start: 20040203, end: 20040707
  4. BACTRIM DS [Concomitant]
  5. VALACYCLOVIR HCL [Concomitant]
  6. PREDNISONE [Concomitant]
  7. POTASSIUM CHLORIDE [Concomitant]

REACTIONS (7)
  - ELECTROENCEPHALOGRAM ABNORMAL [None]
  - ENCEPHALOPATHY [None]
  - INFECTION [None]
  - LISTERIOSIS [None]
  - NUCLEAR MAGNETIC RESONANCE IMAGING BRAIN ABNORMAL [None]
  - PANCYTOPENIA [None]
  - PYREXIA [None]
